FAERS Safety Report 11422421 (Version 1)
Quarter: 2015Q3

REPORT INFORMATION
  Report Type: Not Available
  Country: JP (occurrence: JP)
  Receive Date: 20150827
  Receipt Date: 20150827
  Transmission Date: 20151125
  Serious: Yes (Other)
  Sender: FDA-Public Use
  Company Number: JP-LUPIN PHARMACEUTICALS INC.-2014-01722

PATIENT
  Age: 61 Year
  Sex: Male

DRUGS (1)
  1. AMLODIPINE OD TABLET 5 MG ^AMEL^ [Suspect]
     Active Substance: AMLODIPINE BESYLATE
     Indication: PRODUCT USED FOR UNKNOWN INDICATION
     Route: 065
     Dates: start: 201312, end: 201312

REACTIONS (1)
  - Drug eruption [Unknown]
